FAERS Safety Report 6884786-2 (Version None)
Quarter: 2010Q3

REPORT INFORMATION
  Report Type: 
  Country: None (occurrence: None)
  Receive Date: 20100729
  Receipt Date: 20100719
  Transmission Date: 20110219
  Serious: Yes (Other)
  Sender: FDA-Public Use
  Company Number: US-ABBOTT-08P-163-0468953-00

PATIENT
  Sex: Female

DRUGS (4)
  1. HUMIRA [Suspect]
     Indication: PRODUCT USED FOR UNKNOWN INDICATION
  2. LOVAZA [Concomitant]
     Indication: VITAMIN SUPPLEMENTATION
     Route: 048
  3. CYMBALTA [Concomitant]
     Indication: DEPRESSION
     Route: 048
  4. PAXIL [Concomitant]
     Indication: DEPRESSION
     Route: 048
     Dates: start: 19980101

REACTIONS (30)
  - AMNESIA [None]
  - BACK PAIN [None]
  - BALANCE DISORDER [None]
  - CARPAL TUNNEL SYNDROME [None]
  - CONVULSION [None]
  - DECREASED APPETITE [None]
  - DISORIENTATION [None]
  - DISTURBANCE IN ATTENTION [None]
  - DIZZINESS [None]
  - DYSGRAPHIA [None]
  - EPILEPSY [None]
  - FEELING ABNORMAL [None]
  - FOOT FRACTURE [None]
  - HEPATITIS C [None]
  - HYPOAESTHESIA [None]
  - ILL-DEFINED DISORDER [None]
  - MEMORY IMPAIRMENT [None]
  - NAUSEA [None]
  - NERVOUSNESS [None]
  - NEUROPATHY PERIPHERAL [None]
  - OVARIAN NEOPLASM [None]
  - PAIN IN EXTREMITY [None]
  - POLYP [None]
  - QUALITY OF LIFE DECREASED [None]
  - SCIATICA [None]
  - STARING [None]
  - TREMOR [None]
  - UNRESPONSIVE TO STIMULI [None]
  - VAGINAL HAEMORRHAGE [None]
  - VIRAL LOAD INCREASED [None]
